FAERS Safety Report 17456422 (Version 1)
Quarter: 2020Q1

REPORT INFORMATION
  Report Type: Spontaneous
  Country: CN (occurrence: CN)
  Receive Date: 20200225
  Receipt Date: 20200225
  Transmission Date: 20200409
  Serious: Yes (Hospitalization, Other)
  Sender: FDA-Public Use
  Company Number: CN-PFIZER INC-2020078530

PATIENT
  Age: 73 Year
  Sex: Female
  Weight: 70 kg

DRUGS (12)
  1. TAZOCIN [Suspect]
     Active Substance: PIPERACILLIN SODIUM\TAZOBACTAM SODIUM
     Indication: INFECTION
     Dosage: 4.5 G, 4X/DAY
     Route: 041
     Dates: start: 20191227, end: 20191229
  2. NIMOTOP [Concomitant]
     Active Substance: NIMODIPINE
     Indication: HYPERTENSION
     Dosage: 10 MG, 1X/DAY
     Route: 042
     Dates: start: 20191227, end: 20191229
  3. NENG QUAN LI [Concomitant]
     Indication: NUTRITIONAL SUPPLEMENTATION
     Dosage: 500 ML, 1X/DAY
     Route: 045
     Dates: start: 20191227, end: 20191230
  4. NEXIUM [Concomitant]
     Active Substance: ESOMEPRAZOLE MAGNESIUM
     Indication: PROPHYLAXIS
     Dosage: 40 MG, 2X/DAY
     Route: 041
     Dates: start: 20191227, end: 20191229
  5. PLAVIX [Concomitant]
     Active Substance: CLOPIDOGREL BISULFATE
     Indication: PROPHYLAXIS
     Dosage: 75 MG, 1X/DAY
     Route: 045
     Dates: start: 20191228, end: 20191231
  6. BAYASPIRIN [Concomitant]
     Active Substance: ASPIRIN
     Indication: PROPHYLAXIS
     Dosage: 100 MG, 1X/DAY
     Route: 045
     Dates: start: 20191228, end: 20191230
  7. XIN WEI NING [SODIUM CHLORIDE;TIROFIBAN HYDROCHLORIDE] [Concomitant]
     Indication: ANTICOAGULANT THERAPY
     Dosage: 5 MG, 1X/DAY
     Route: 042
     Dates: start: 20191228, end: 20191228
  8. IODIXANOL. [Suspect]
     Active Substance: IODIXANOL
     Indication: THERAPEUTIC PROCEDURE
     Dosage: 300 ML, 1X/DAY
     Route: 040
     Dates: start: 20191227, end: 20191227
  9. FUROSEMIDE. [Concomitant]
     Active Substance: FUROSEMIDE
     Indication: DIURETIC THERAPY
     Dosage: 20 MG, 1X/DAY
     Route: 040
     Dates: start: 20191228, end: 20191230
  10. HUMAN ALBUMIN [Concomitant]
     Active Substance: ALBUMIN HUMAN
     Indication: DEHYDRATION
     Dosage: 10 G, 1X/DAY
     Route: 041
     Dates: start: 20191227, end: 20191230
  11. NOREPINEPHRINE BITARTRATE. [Concomitant]
     Active Substance: NOREPINEPHRINE BITARTRATE
     Indication: HAEMOSTASIS
     Dosage: 18 MG, 1X/DAY
     Route: 042
     Dates: start: 20191228, end: 20191228
  12. MANNITOL. [Concomitant]
     Active Substance: MANNITOL
     Indication: DEHYDRATION
     Dosage: 125 ML, 3X/DAY
     Route: 041
     Dates: start: 20191227, end: 20191229

REACTIONS (6)
  - Renal injury [Recovering/Resolving]
  - Renal failure [Recovering/Resolving]
  - Urine output decreased [Recovering/Resolving]
  - Blood urea abnormal [Recovering/Resolving]
  - Anuria [Recovering/Resolving]
  - Blood creatinine increased [Recovering/Resolving]

NARRATIVE: CASE EVENT DATE: 20191229
